FAERS Safety Report 15356545 (Version 1)
Quarter: 2018Q3

REPORT INFORMATION
  Report Type: Other
  Country: IT (occurrence: IT)
  Receive Date: 20180906
  Receipt Date: 20180906
  Transmission Date: 20181010
  Serious: Yes (Hospitalization, Other)
  Sender: FDA-Public Use
  Company Number: IT-MACLEODS PHARMACEUTICALS US LTD-MAC2018016513

PATIENT

DRUGS (4)
  1. HALOPERIDOL. [Suspect]
     Active Substance: HALOPERIDOL
     Indication: PRODUCT USED FOR UNKNOWN INDICATION
     Dosage: 30 MILLIGRAM, SINGLE, TOTAL, ABUSE / MISUSE
     Route: 048
     Dates: start: 20180818, end: 20180818
  2. ARIPIPRAZOLE. [Suspect]
     Active Substance: ARIPIPRAZOLE
     Indication: PRODUCT USED FOR UNKNOWN INDICATION
     Dosage: 3000 MILLIGRAM, SINGLE, TOTAL, ABUSE / MISUSE
     Route: 048
     Dates: start: 20180818, end: 20180818
  3. PREDNISOLONE. [Suspect]
     Active Substance: PREDNISOLONE
     Indication: PRODUCT USED FOR UNKNOWN INDICATION
     Dosage: 250 MILLIGRAM, SINGLE, TOTAL, ABUSE / MISUSE
     Route: 048
     Dates: start: 20180818, end: 20180818
  4. PARACETAMOL [Suspect]
     Active Substance: ACETAMINOPHEN
     Indication: PRODUCT USED FOR UNKNOWN INDICATION
     Dosage: 7000 MILLIGRAM, SINGLE, TOTAL, ABUSE / MISUSE
     Route: 048
     Dates: start: 20180818, end: 20180818

REACTIONS (4)
  - Bradykinesia [Unknown]
  - Suicide attempt [Unknown]
  - Sopor [Unknown]
  - Drug abuse [Unknown]

NARRATIVE: CASE EVENT DATE: 20180818
